FAERS Safety Report 25332422 (Version 2)
Quarter: 2025Q2

REPORT INFORMATION
  Report Type: Spontaneous
  Country: US (occurrence: US)
  Receive Date: 20250519
  Receipt Date: 20250523
  Transmission Date: 20250716
  Serious: No
  Sender: PFIZER
  Company Number: US-PFIZER INC-PV202500059104

PATIENT
  Age: 42 Year
  Sex: Female

DRUGS (14)
  1. SOLU-MEDROL [Suspect]
     Active Substance: METHYLPREDNISOLONE SODIUM SUCCINATE
  2. ALBUTEROL SULFATE [Concomitant]
     Active Substance: ALBUTEROL SULFATE
  3. VITAMIN B12 [Concomitant]
     Active Substance: CYANOCOBALAMIN
  4. BACLOFEN [Concomitant]
     Active Substance: BACLOFEN
  5. ESCITALOPRAM [Concomitant]
     Active Substance: ESCITALOPRAM OXALATE
  6. FINGOLIMOD [Concomitant]
     Active Substance: FINGOLIMOD
  7. LORAZEPAM [Concomitant]
     Active Substance: LORAZEPAM
  8. ONDANSETRON [Concomitant]
     Active Substance: ONDANSETRON
  9. VITAMIN D3 [Concomitant]
     Active Substance: CHOLECALCIFEROL
  10. IRON [Concomitant]
     Active Substance: IRON
  11. COPAXONE [Concomitant]
     Active Substance: GLATIRAMER ACETATE
  12. GILENYA [Concomitant]
     Active Substance: FINGOLIMOD HYDROCHLORIDE
  13. ATIVAN [Concomitant]
     Active Substance: LORAZEPAM
  14. LEXAPRO [Concomitant]
     Active Substance: ESCITALOPRAM OXALATE

REACTIONS (5)
  - Feeling hot [Unknown]
  - Hunger [Unknown]
  - Agitation [Unknown]
  - Thirst [Unknown]
  - Insomnia [Unknown]

NARRATIVE: CASE EVENT DATE: 20250415
